FAERS Safety Report 8658781 (Version 3)
Quarter: 2013Q1

REPORT INFORMATION
  Report Type: Report from Study
  Country: DE (occurrence: DE)
  Receive Date: 20120710
  Receipt Date: 20130214
  Transmission Date: 20140127
  Serious: Yes (Hospitalization)
  Sender: FDA-Public Use
  Company Number: DE-WATSON-2012-11178

PATIENT
  Age: 64 Year
  Sex: Male
  Weight: 120 kg

DRUGS (5)
  1. RAPAFLO (WATSON LABORATORIES) [Suspect]
     Indication: BENIGN PROSTATIC HYPERPLASIA
     Dosage: 8 MG, DAILY
     Route: 048
     Dates: start: 20120405, end: 20120608
  2. PROTAPHANE [Concomitant]
     Indication: DIABETES MELLITUS
     Dosage: 32 IE INTERNATIONAL UNITS
     Route: 065
     Dates: start: 20000101
  3. ACTRAPID                           /00646001/ [Concomitant]
     Indication: DIABETES MELLITUS
     Dosage: UNK
     Route: 065
     Dates: start: 20000101
  4. AMLODIPIN                          /00972401/ [Concomitant]
     Indication: HYPERTENSION
     Dosage: 5 MG DAILY DOSE
     Route: 048
     Dates: start: 20120320
  5. METOPROLOL [Concomitant]
     Indication: HYPERTENSION
     Dosage: 50 MG, DAILY DOSE
     Route: 048
     Dates: start: 20120320

REACTIONS (1)
  - Transient ischaemic attack [Recovered/Resolved]
